FAERS Safety Report 11824303 (Version 1)
Quarter: 2015Q4

REPORT INFORMATION
  Report Type: Spontaneous
  Country: US (occurrence: US)
  Receive Date: 20151210
  Receipt Date: 20151210
  Transmission Date: 20160305
  Serious: Yes (Other)
  Sender: FDA-Public Use
  Company Number: US-LPDUSPRD-20150891

PATIENT
  Age: 79 Year
  Sex: Male
  Weight: 55 kg

DRUGS (5)
  1. SALINE ORAL OTC [Concomitant]
     Active Substance: SODIUM CHLORIDE
     Dosage: DOSE NOT PROVIDED
     Route: 065
  2. HEPARIN [Concomitant]
     Active Substance: HEPARIN SODIUM
     Dosage: DOSE NOT PROVIDED
     Route: 065
  3. VENOFER [Suspect]
     Active Substance: IRON SUCROSE
     Dosage: 100 MG
     Route: 040
     Dates: start: 20150713
  4. OPTIFLUX DIALYZER [Suspect]
     Active Substance: DEVICE
     Dosage: NOT PROVIDED
     Route: 010
     Dates: start: 20150713
  5. UNSPECIFIED INGREDIENT [Suspect]
     Active Substance: UNSPECIFIED INGREDIENT
     Dosage: UNKNOWN
     Route: 010
     Dates: start: 20150713

REACTIONS (2)
  - Blood pressure decreased [Unknown]
  - Pruritus [Unknown]

NARRATIVE: CASE EVENT DATE: 20150713
